FAERS Safety Report 4411884-5 (Version None)
Quarter: 2004Q3

REPORT INFORMATION
  Report Type: 
  Country: None (occurrence: None)
  Receive Date: 20040730
  Receipt Date: 20030729
  Transmission Date: 20050211
  Serious: No
  Sender: FDA-Public Use
  Company Number: US-GLAXOSMITHKLINE-A0419193A

PATIENT
  Age: 50 Year
  Sex: Female

DRUGS (15)
  1. ZANTAC [Suspect]
     Indication: ILL-DEFINED DISORDER
     Route: 065
  2. FLOVENT [Concomitant]
     Indication: CHRONIC OBSTRUCTIVE AIRWAYS DISEASE
     Dosage: 220MCG UNKNOWN
     Route: 055
  3. ALBUTEROL [Concomitant]
     Route: 055
  4. ADVAIR DISKUS 100/50 [Concomitant]
     Route: 055
  5. ATROVENT [Concomitant]
  6. COMBIVENT [Concomitant]
  7. NIFEDIPINE [Concomitant]
  8. LEVOXYL [Concomitant]
     Indication: HYPOTHYROIDISM
     Route: 065
  9. NEURONTIN [Concomitant]
     Indication: DEPRESSION
     Route: 065
  10. TEMAZEPAM [Concomitant]
     Indication: DEPRESSION
     Route: 065
  11. MAXZIDE [Concomitant]
     Route: 065
  12. PROVERA [Concomitant]
     Dosage: 5MG UNKNOWN
     Route: 065
  13. PREMARIN [Concomitant]
     Route: 065
  14. PREVACID [Concomitant]
     Route: 065
  15. PEPCID [Concomitant]

REACTIONS (1)
  - DRUG INEFFECTIVE [None]
